FAERS Safety Report 6423639-0 (Version None)
Quarter: 2009Q4

REPORT INFORMATION
  Report Type: 
  Country: None (occurrence: None)
  Receive Date: 20091102
  Receipt Date: 20091022
  Transmission Date: 20100525
  Serious: Yes (Life-Threatening)
  Sender: FDA-Public Use
  Company Number: JP-WATSON-2009-06803

PATIENT
  Age: 77 Year
  Sex: Male

DRUGS (10)
  1. RAPAFLO [Suspect]
     Indication: BLADDER OBSTRUCTION
     Dosage: 4 MG, BID
     Route: 048
     Dates: start: 20070703, end: 20081104
  2. CERNILTON                          /00521401/ [Concomitant]
     Indication: BENIGN PROSTATIC HYPERPLASIA
     Dosage: 6 DF, DAILY
     Route: 048
     Dates: start: 20070215, end: 20081104
  3. ZYLORIC                            /00003301/ [Concomitant]
     Indication: DRUG USE FOR UNKNOWN INDICATION
     Dosage: 100 MG, DAILY
     Route: 048
     Dates: start: 20070215, end: 20081104
  4. GASTER D [Concomitant]
     Indication: DRUG USE FOR UNKNOWN INDICATION
     Dosage: 40 MG, DAILY
     Route: 048
     Dates: start: 20070509, end: 20081104
  5. MELBIN                             /00082702/ [Concomitant]
     Indication: DRUG USE FOR UNKNOWN INDICATION
     Dosage: 750 MG, DAILY
     Route: 048
     Dates: start: 20070703, end: 20081104
  6. NIVADIL [Concomitant]
     Indication: DRUG USE FOR UNKNOWN INDICATION
     Dosage: 4 MG, DAILY
     Route: 048
     Dates: start: 20070919, end: 20071115
  7. DIOVAN                             /01319601/ [Concomitant]
     Indication: DRUG USE FOR UNKNOWN INDICATION
     Dosage: 40 MG, DAILY
     Route: 048
     Dates: start: 20071116, end: 20081104
  8. MUCOSTA [Concomitant]
     Indication: DRUG USE FOR UNKNOWN INDICATION
     Dosage: 300 MG, DAILY
     Route: 048
     Dates: start: 20071214, end: 20081104
  9. EPADEL [Concomitant]
     Indication: DRUG USE FOR UNKNOWN INDICATION
     Dosage: 1800 MG, DAILY
     Route: 048
     Dates: start: 20071214, end: 20081104
  10. RONSTERON [Concomitant]
     Indication: BENIGN PROSTATIC HYPERPLASIA
     Dosage: 50 MG, DAILY
     Route: 048
     Dates: start: 20080701, end: 20081104

REACTIONS (1)
  - ACUTE MYOCARDIAL INFARCTION [None]
